FAERS Safety Report 4771974-4 (Version None)
Quarter: 2005Q3

REPORT INFORMATION
  Report Type: 
  Country: None (occurrence: None)
  Receive Date: 20050916
  Receipt Date: 20050819
  Transmission Date: 20060218
  Serious: Yes (Death, Other)
  Sender: FDA-Public Use
  Company Number: US-BRISTOL-MYERS SQUIBB COMPANY-13084298

PATIENT

DRUGS (1)
  1. ENTECAVIR [Suspect]

REACTIONS (2)
  - PLATELET COUNT DECREASED [None]
  - VARICOSE VEIN RUPTURED [None]
